FAERS Safety Report 16313629 (Version 1)
Quarter: 2019Q2

REPORT INFORMATION
  Report Type: Spontaneous
  Country: US (occurrence: US)
  Receive Date: 20190515
  Receipt Date: 20190515
  Transmission Date: 20190711
  Serious: No
  Sender: FDA-Public Use
  Company Number: US-ASTRAZENECA-2019SE59149

PATIENT
  Sex: Female
  Weight: 81.6 kg

DRUGS (8)
  1. ASTERLINE [Concomitant]
     Indication: ASTHMA
     Dosage: UNKNOWN
     Route: 045
  2. FLONASE [Concomitant]
     Active Substance: FLUTICASONE PROPIONATE
     Indication: ASTHMA
     Dosage: UNKNOWN
     Route: 045
  3. ASTERLINE [Concomitant]
     Indication: MULTIPLE ALLERGIES
     Dosage: UNKNOWN
     Route: 045
  4. CETIRIZINE [Concomitant]
     Active Substance: CETIRIZINE HYDROCHLORIDE
     Indication: ASTHMA
     Dosage: UNKNOWN
     Route: 048
  5. PREDNISONE. [Concomitant]
     Active Substance: PREDNISONE
  6. FASENRA [Suspect]
     Active Substance: BENRALIZUMAB
     Indication: ASTHMA
     Dosage: EVERY FOUR WEEKS
     Route: 058
     Dates: start: 20190330
  7. FLONASE [Concomitant]
     Active Substance: FLUTICASONE PROPIONATE
     Indication: MULTIPLE ALLERGIES
     Dosage: UNKNOWN
     Route: 045
  8. CETIRIZINE [Concomitant]
     Active Substance: CETIRIZINE HYDROCHLORIDE
     Indication: MULTIPLE ALLERGIES
     Dosage: UNKNOWN
     Route: 048

REACTIONS (6)
  - Lacrimation increased [Unknown]
  - Dysphonia [Unknown]
  - Rhinorrhoea [Unknown]
  - Lung disorder [Unknown]
  - Hypersensitivity [Unknown]
  - Upper-airway cough syndrome [Unknown]
